FAERS Safety Report 8748560 (Version 2)
Quarter: 2012Q4

REPORT INFORMATION
  Report Type: 
  Country: DE (occurrence: DE)
  Receive Date: 20120827
  Receipt Date: 20121031
  Transmission Date: 20130627
  Serious: Yes (Hospitalization, Other)
  Sender: FDA-Public Use
  Company Number: DE-ROCHE-1106813

PATIENT
  Age: 76 None
  Sex: Female

DRUGS (3)
  1. MABTHERA [Suspect]
     Indication: IDIOPATHIC THROMBOCYTOPENIC PURPURA
     Route: 042
     Dates: start: 200410, end: 200411
  2. CORTISONE [Concomitant]
  3. NPLATE [Concomitant]

REACTIONS (2)
  - Motor neurone disease [Not Recovered/Not Resolved]
  - Vascular encephalopathy [Unknown]
